FAERS Safety Report 12530616 (Version 3)
Quarter: 2016Q4

REPORT INFORMATION
  Report Type: Spontaneous
  Country: US (occurrence: US)
  Receive Date: 20160706
  Receipt Date: 20161109
  Transmission Date: 20170207
  Serious: No
  Sender: FDA-Public Use
  Company Number: US-GLAXOSMITHKLINE-US2016GSK090497

PATIENT
  Sex: Male

DRUGS (1)
  1. LAMICTAL XR [Suspect]
     Active Substance: LAMOTRIGINE
     Indication: SEIZURE
     Dosage: 250 MG, UNK
     Dates: start: 20160202

REACTIONS (5)
  - Dizziness [Unknown]
  - Balance disorder [Unknown]
  - Drug dose omission [Unknown]
  - Dysarthria [Unknown]
  - Drug hypersensitivity [Unknown]
